FAERS Safety Report 4710270-8 (Version None)
Quarter: 2005Q3

REPORT INFORMATION
  Report Type: 
  Country: None (occurrence: None)
  Receive Date: 20050711
  Receipt Date: 20050629
  Transmission Date: 20060218
  Serious: Yes (Other)
  Sender: FDA-Public Use
  Company Number: US-JNJFOC-20050700190

PATIENT
  Sex: Female
  Weight: 56.25 kg

DRUGS (4)
  1. REMICADE [Suspect]
     Indication: RHEUMATOID ARTHRITIS
     Dosage: 1.5-2YEARS
     Dates: end: 20050501
  2. METHOTREXATE [Concomitant]
  3. FOLIC ACID [Concomitant]
  4. CELEBREX [Concomitant]
     Dosage: DAILY

REACTIONS (2)
  - FOOT FRACTURE [None]
  - ROAD TRAFFIC ACCIDENT [None]
